FAERS Safety Report 10654949 (Version 2)
Quarter: 2014Q4

REPORT INFORMATION
  Report Type: Spontaneous
  Country: DE (occurrence: None)
  Receive Date: 20141212
  Receipt Date: 20141231
  Transmission Date: 20150529
  Serious: Yes (Life-Threatening, Other)
  Sender: FDA-Public Use
  Company Number: FK201406006

PATIENT
  Age: 40 Year
  Sex: Male
  Weight: 90 kg

DRUGS (1)
  1. PROPOFOL 2% [Suspect]
     Active Substance: PROPOFOL
     Indication: STATUS EPILEPTICUS
     Dosage: UP TO 550 MG/H, INTRAVENOUS (NOT OTHERWISE SPECIFIED)
     Route: 042
     Dates: start: 20140717, end: 20140719

REACTIONS (3)
  - Rhabdomyolysis [None]
  - Acute kidney injury [None]
  - Continuous haemodiafiltration [None]

NARRATIVE: CASE EVENT DATE: 20140719
